FAERS Safety Report 9771322 (Version 1)
Quarter: 2013Q4

REPORT INFORMATION
  Report Type: Report from Study
  Country: HU (occurrence: HU)
  Receive Date: 20131218
  Receipt Date: 20131218
  Transmission Date: 20140711
  Serious: Yes (Hospitalization, Other)
  Sender: FDA-Public Use
  Company Number: PHHY2013HU146582

PATIENT
  Age: 32 Year
  Sex: Female
  Weight: 48 kg

DRUGS (3)
  1. FTY 720 [Suspect]
     Indication: MULTIPLE SCLEROSIS
     Dosage: 0.5 MG, QD
     Route: 048
     Dates: start: 20130528
  2. CLOPIDOGREL [Concomitant]
     Indication: BASILAR ARTERY THROMBOSIS
     Dosage: 75 MG, UNK
     Dates: start: 201206
  3. ASPIRIN PROTECT [Concomitant]
     Dosage: 100 MG, QD

REACTIONS (4)
  - Optic neuritis [Recovered/Resolved]
  - Vision blurred [Unknown]
  - Visual impairment [Recovered/Resolved]
  - Neuritis [Unknown]
